FAERS Safety Report 10779981 (Version 1)
Quarter: 2015Q1

REPORT INFORMATION
  Report Type: Spontaneous
  Country: US (occurrence: US)
  Receive Date: 20150210
  Receipt Date: 20150210
  Transmission Date: 20150721
  Serious: Yes (Other)
  Sender: FDA-Public Use
  Company Number: US-GLAXOSMITHKLINE-US2014034902

PATIENT
  Age: 75 Year
  Sex: Female

DRUGS (9)
  1. IRON [Concomitant]
     Active Substance: IRON
  2. SPIRIVA [Concomitant]
     Active Substance: TIOTROPIUM BROMIDE MONOHYDRATE
  3. ADVAIR DISKUS [Suspect]
     Active Substance: FLUTICASONE PROPIONATE\SALMETEROL XINAFOATE
     Indication: ASTHMA
     Dosage: 250/50 UG
     Route: 055
  4. ASPIRIN. [Concomitant]
     Active Substance: ASPIRIN
  5. DONEPEZIL [Concomitant]
     Active Substance: DONEPEZIL
  6. VITAMIN D [Concomitant]
     Active Substance: CHOLECALCIFEROL
  7. LEVOTHYROXINE [Concomitant]
     Active Substance: LEVOTHYROXINE
  8. NAMENDA [Concomitant]
     Active Substance: MEMANTINE HYDROCHLORIDE
  9. SIMVASTATIN. [Concomitant]
     Active Substance: SIMVASTATIN

REACTIONS (4)
  - Dementia Alzheimer^s type [Unknown]
  - Dizziness [Not Recovered/Not Resolved]
  - Dizziness postural [Unknown]
  - Mobility decreased [Not Recovered/Not Resolved]

NARRATIVE: CASE EVENT DATE: 200903
